APPROVED DRUG PRODUCT: VINCRISTINE SULFATE PFS
Active Ingredient: VINCRISTINE SULFATE
Strength: 1MG/ML
Dosage Form/Route: INJECTABLE;INJECTION
Application: A075493 | Product #001
Applicant: TEVA PHARMACEUTICALS USA
Approved: Sep 1, 1999 | RLD: No | RS: No | Type: DISCN